FAERS Safety Report 8781463 (Version 1)
Quarter: 2012Q4

REPORT INFORMATION
  Report Type: 
  Country: US (occurrence: US)
  Receive Date: 20120913
  Receipt Date: 20120913
  Transmission Date: 20130627
  Serious: No
  Sender: FDA-Public Use
  Company Number: US-VERTEX PHARMACEUTICAL INC.-AE-2012-007959

PATIENT
  Age: 51 Year
  Sex: Female
  Weight: 81.82 kg

DRUGS (10)
  1. INCIVEK [Suspect]
     Indication: HEPATITIS C
     Route: 048
     Dates: start: 20120323
  2. RIBASPHERE [Concomitant]
     Indication: HEPATITIS C
     Route: 048
     Dates: start: 20120323
  3. PEGASYS [Concomitant]
     Indication: HEPATITIS C
     Route: 058
     Dates: start: 20120323
  4. ACTOS [Concomitant]
     Indication: DIABETES MELLITUS
     Route: 048
  5. FISH OIL [Concomitant]
     Route: 048
  6. MILK THISTLE [Concomitant]
     Route: 048
  7. LISINOPRIL [Concomitant]
     Indication: HYPERTENSION
     Route: 048
  8. MULTIVITAMIN [Concomitant]
     Route: 048
  9. CALCIUM [Concomitant]
     Route: 048
  10. VITAMIN D [Concomitant]
     Route: 048

REACTIONS (6)
  - Fatigue [Not Recovered/Not Resolved]
  - Haemorrhoids [Not Recovered/Not Resolved]
  - Anal pruritus [Not Recovered/Not Resolved]
  - Anorectal discomfort [Not Recovered/Not Resolved]
  - Haematochezia [Not Recovered/Not Resolved]
  - Painful defaecation [Not Recovered/Not Resolved]
